FAERS Safety Report 11177744 (Version 1)
Quarter: 2015Q2

REPORT INFORMATION
  Report Type: Spontaneous
  Country: US (occurrence: None)
  Receive Date: 20150609
  Receipt Date: 20150609
  Transmission Date: 20150821
  Serious: Yes (Life-Threatening, Other)
  Sender: FDA-Public Use
  Company Number: None

PATIENT
  Age: 83 Year
  Sex: Male
  Weight: 90.72 kg

DRUGS (10)
  1. AMLODIPINE BESYLATE. [Concomitant]
     Active Substance: AMLODIPINE BESYLATE
  2. PREDNISONE. [Concomitant]
     Active Substance: PREDNISONE
  3. SYMBICORT [Concomitant]
     Active Substance: BUDESONIDE\FORMOTEROL FUMARATE DIHYDRATE
  4. PROAIR (ALBUTEROL) [Concomitant]
  5. MULTIVITAMIN [Concomitant]
     Active Substance: VITAMINS
  6. IRON [Concomitant]
     Active Substance: IRON
  7. ALFUZOSIN [Concomitant]
     Active Substance: ALFUZOSIN
  8. XARELTO [Suspect]
     Active Substance: RIVAROXABAN
     Indication: ANTICOAGULANT THERAPY
     Dosage: 1 PILL
     Route: 048
     Dates: start: 20150228, end: 20150608
  9. XARELTO [Suspect]
     Active Substance: RIVAROXABAN
     Indication: LUNG DISORDER
     Dosage: 1 PILL
     Route: 048
     Dates: start: 20150228, end: 20150608
  10. SPIRIVA [Concomitant]
     Active Substance: TIOTROPIUM BROMIDE MONOHYDRATE

REACTIONS (7)
  - Internal haemorrhage [None]
  - Activities of daily living impaired [None]
  - Back pain [None]
  - Cough [None]
  - Muscular weakness [None]
  - Anaemia [None]
  - Peripheral swelling [None]

NARRATIVE: CASE EVENT DATE: 20150224
